FAERS Safety Report 10108747 (Version 1)
Quarter: 2014Q2

REPORT INFORMATION
  Report Type: Spontaneous
  Country: US (occurrence: US)
  Receive Date: 20140425
  Receipt Date: 20140425
  Transmission Date: 20141212
  Serious: Yes (Other)
  Sender: FDA-Public Use
  Company Number: US-AMGEN INC.-USASP2014029772

PATIENT
  Age: 61 Year
  Sex: Female

DRUGS (2)
  1. ENBREL [Suspect]
     Indication: RHEUMATOID ARTHRITIS
     Dosage: 50 MG, QWK
     Route: 065
     Dates: start: 20120813
  2. HUMIRA [Concomitant]
     Dosage: UNK

REACTIONS (7)
  - Sjogren^s syndrome [Not Recovered/Not Resolved]
  - Drug effect decreased [Recovered/Resolved]
  - Condition aggravated [Recovered/Resolved]
  - Injection site extravasation [Recovered/Resolved]
  - Pain [Recovered/Resolved]
  - Gait disturbance [Recovered/Resolved]
  - Musculoskeletal disorder [Recovered/Resolved]
